FAERS Safety Report 11388123 (Version 1)
Quarter: 2015Q3

REPORT INFORMATION
  Report Type: Spontaneous
  Country: US (occurrence: US)
  Receive Date: 20150817
  Receipt Date: 20150817
  Transmission Date: 20151125
  Serious: No
  Sender: FDA-Public Use
  Company Number: US-BAYER-2015-401374

PATIENT
  Age: 67 Year
  Sex: Male
  Weight: 86.17 kg

DRUGS (1)
  1. ALEVE PM [Suspect]
     Active Substance: DIPHENHYDRAMINE HYDROCHLORIDE\NAPROXEN SODIUM
     Indication: MUSCLE SPASMS
     Dosage: 2 DF, PRN
     Route: 048
     Dates: start: 201506

REACTIONS (2)
  - Diarrhoea [Unknown]
  - Product use issue [None]

NARRATIVE: CASE EVENT DATE: 201506
